FAERS Safety Report 10222517 (Version 1)
Quarter: 2014Q2

REPORT INFORMATION
  Report Type: Spontaneous
  Country: DE (occurrence: DE)
  Receive Date: 20140606
  Receipt Date: 20140606
  Transmission Date: 20141212
  Serious: Yes (Other)
  Sender: FDA-Public Use
  Company Number: DE-TEVA-485292GER

PATIENT
  Age: 46 Year
  Sex: Female

DRUGS (4)
  1. VENLAFAXINE [Suspect]
     Dosage: 75 MILLIGRAM DAILY;
     Route: 048
     Dates: start: 20130730, end: 20130805
  2. VENLAFAXINE [Suspect]
     Dosage: 150 MILLIGRAM DAILY;
     Route: 048
     Dates: start: 20130806, end: 20130808
  3. VENLAFAXINE [Suspect]
     Dosage: 225 MILLIGRAM DAILY;
     Route: 048
     Dates: start: 20130809, end: 20130810
  4. VENLAFAXINE [Suspect]
     Dosage: 150 MILLIGRAM DAILY;
     Route: 048
     Dates: start: 20130811

REACTIONS (8)
  - Nervous system disorder [Recovered/Resolved]
  - Paraesthesia [Recovered/Resolved]
  - Vision blurred [Recovered/Resolved]
  - Palpitations [Recovered/Resolved]
  - Tachyphrenia [Recovered/Resolved]
  - Anxiety [Recovered/Resolved]
  - Headache [Recovered/Resolved]
  - Hyperhidrosis [Recovered/Resolved]
